FAERS Safety Report 9881584 (Version 2)
Quarter: 2014Q1

REPORT INFORMATION
  Report Type: Report from Study
  Country: US (occurrence: US)
  Receive Date: 20140207
  Receipt Date: 20140207
  Transmission Date: 20141002
  Serious: Yes (Hospitalization, Other)
  Sender: FDA-Public Use
  Company Number: US-ALEXION PHARMACEUTICALS INC.-A201304869

PATIENT
  Sex: Female

DRUGS (11)
  1. SOLIRIS [Suspect]
     Indication: HAEMOLYTIC URAEMIC SYNDROME
     Dosage: UNK
     Route: 042
     Dates: start: 20130411
  2. SOLIRIS [Suspect]
     Dosage: 1200 MG, UNK
     Route: 042
     Dates: start: 20131104
  3. SOLIRIS [Suspect]
     Dosage: UNK
     Route: 042
     Dates: start: 20140113
  4. CEFEPIME [Concomitant]
     Indication: ANTIBIOTIC PROPHYLAXIS
     Dosage: UNK
     Dates: start: 20130422
  5. CLINDAMYCINE                       /00166002/ [Concomitant]
     Dosage: 600 MG, EVERY 8 HRS
     Route: 042
     Dates: start: 20130422
  6. LABETALOL [Concomitant]
     Indication: HYPERTENSION
     Dosage: 100 MG, Q12D
     Dates: start: 20130422
  7. NIFEDIPINE [Concomitant]
     Indication: HYPERTENSION
     Dosage: 30 MG, QD
     Dates: start: 20130422
  8. PROTONIX [Concomitant]
     Dosage: 40 MG, QD
     Dates: start: 20130422
  9. ULTRAM                             /00599202/ [Concomitant]
     Indication: PAIN
     Dosage: 50 MG, Q12D
     Dates: start: 20130422
  10. RISPERDAL [Concomitant]
     Dosage: UNK
     Dates: start: 20130105
  11. ZYPREXA [Concomitant]
     Indication: PSYCHOTIC DISORDER
     Dosage: UNK
     Dates: start: 20130105

REACTIONS (2)
  - Mental disorder [Unknown]
  - Blood pressure increased [Recovering/Resolving]
